FAERS Safety Report 4741527-2 (Version None)
Quarter: 2005Q3

REPORT INFORMATION
  Report Type: 
  Country: None (occurrence: None)
  Receive Date: 20050808
  Receipt Date: 20050728
  Transmission Date: 20060218
  Serious: No
  Sender: FDA-Public Use
  Company Number: 2005-130835-NL

PATIENT
  Age: 37 Year
  Sex: Female

DRUGS (4)
  1. DEXAMETHASONE [Suspect]
     Indication: ERYTHEMA NODOSUM
     Dosage: 100 MG
     Route: 042
  2. THALIDOMIDE [Suspect]
     Indication: ERYTHEMA NODOSUM
     Dosage: 100 MG BID
  3. CYCLOPHOSPHAMIDE [Suspect]
     Indication: ERYTHEMA NODOSUM
     Dosage: 500 ML
  4. PREDNISOLONE [Concomitant]

REACTIONS (1)
  - DEEP VEIN THROMBOSIS [None]
